FAERS Safety Report 7392525-4 (Version None)
Quarter: 2011Q2

REPORT INFORMATION
  Report Type: 
  Country: None (occurrence: None)
  Receive Date: 20110404
  Receipt Date: 20110324
  Transmission Date: 20111010
  Serious: Yes (Hospitalization, Other)
  Sender: FDA-Public Use
  Company Number: SE-ASTRAZENECA-2011SE16637

PATIENT
  Age: 76 Year
  Sex: Female

DRUGS (6)
  1. DIGOXIN [Suspect]
     Route: 065
     Dates: end: 20110308
  2. SELOKEN ZOC [Concomitant]
     Route: 048
  3. TROMBYL [Concomitant]
     Route: 048
  4. IRESSA [Interacting]
     Route: 048
     Dates: end: 20110308
  5. METOPROLOL ACTAVIS [Concomitant]
  6. WARAN [Interacting]
     Indication: ATRIAL FIBRILLATION
     Route: 002
     Dates: end: 20110308

REACTIONS (3)
  - INTERNATIONAL NORMALISED RATIO INCREASED [None]
  - TOXICITY TO VARIOUS AGENTS [None]
  - DRUG INTERACTION [None]
